FAERS Safety Report 5565299-7 (Version None)
Quarter: 2007Q4

REPORT INFORMATION
  Report Type: 
  Country: None (occurrence: None)
  Receive Date: 20071218
  Receipt Date: 20071206
  Transmission Date: 20080405
  Serious: Yes (Other)
  Sender: FDA-Public Use
  Company Number: BR-PFIZER INC-2007096662

PATIENT
  Sex: Male
  Weight: 94 kg

DRUGS (2)
  1. CHAMPIX [Suspect]
     Indication: TOBACCO USER
     Route: 048
  2. ABILIFY [Concomitant]

REACTIONS (2)
  - ACTIVITIES OF DAILY LIVING IMPAIRED [None]
  - IMPAIRED DRIVING ABILITY [None]
